FAERS Safety Report 6463151-6 (Version None)
Quarter: 2009Q4

REPORT INFORMATION
  Report Type: 
  Country: None (occurrence: None)
  Receive Date: 20091123
  Receipt Date: 20091110
  Transmission Date: 20100525
  Serious: Yes (Hospitalization)
  Sender: FDA-Public Use
  Company Number: 2009-04685

PATIENT
  Age: 42 Year
  Sex: Male

DRUGS (6)
  1. VELCADE [Suspect]
     Indication: DRUG USE FOR UNKNOWN INDICATION
     Dosage: UNK, UNK, ORAL
     Route: 048
  2. THALOMID [Suspect]
     Indication: MULTIPLE MYELOMA
     Dosage: 100 MG, UNK, ORAL, 50 MG, UNK, ORAL
     Route: 048
     Dates: start: 20081115, end: 20081220
  3. THALOMID [Suspect]
     Indication: MULTIPLE MYELOMA
     Dosage: 100 MG, UNK, ORAL, 50 MG, UNK, ORAL
     Route: 048
     Dates: start: 20081201, end: 20081228
  4. DOXIL [Concomitant]
  5. CYTOXAN [Concomitant]
  6. PAMIDRONATE DISODIUM [Concomitant]

REACTIONS (7)
  - ATRIAL THROMBOSIS [None]
  - HAEMATOCRIT DECREASED [None]
  - HAEMOGLOBIN DECREASED [None]
  - INTERNATIONAL NORMALISED RATIO INCREASED [None]
  - NEUROPATHY PERIPHERAL [None]
  - PARAESTHESIA [None]
  - THROMBOCYTOPENIA [None]
